FAERS Safety Report 4677578-6 (Version None)
Quarter: 2005Q2

REPORT INFORMATION
  Report Type: 
  Country: None (occurrence: None)
  Receive Date: 20050525
  Receipt Date: 20050525
  Transmission Date: 20051028
  Serious: No
  Sender: FDA-Public Use
  Company Number: None

PATIENT
  Age: 53 Year
  Sex: Male
  Weight: 77.1115 kg

DRUGS (9)
  1. FENTANYL [Suspect]
     Indication: PAIN
     Dosage: 50 MCG TRANSDERM Q 72 HRS
     Route: 062
     Dates: start: 20050416
  2. AMBIEN [Concomitant]
  3. QUINAPRIL [Concomitant]
  4. TRICOR [Concomitant]
  5. NADOLOL [Concomitant]
  6. IMITREX [Concomitant]
  7. TRAZODONE [Concomitant]
  8. EFFEXOR XR [Concomitant]
  9. PRILOSEC OTC [Concomitant]

REACTIONS (3)
  - DRUG WITHDRAWAL SYNDROME [None]
  - PAIN [None]
  - THERAPEUTIC RESPONSE UNEXPECTED WITH DRUG SUBSTITUTION [None]
